FAERS Safety Report 5028057-8 (Version None)
Quarter: 2006Q2

REPORT INFORMATION
  Report Type: 
  Country: None (occurrence: None)
  Receive Date: 20060613
  Receipt Date: 20060526
  Transmission Date: 20061013
  Serious: Yes (Death)
  Sender: FDA-Public Use
  Company Number: 06-NIP00093

PATIENT
  Age: 43 Year
  Sex: Female

DRUGS (3)
  1. NIPENT [Suspect]
     Indication: NON-HODGKIN'S LYMPHOMA
     Dates: start: 20060519
  2. CYCLOPHOSPHAMIDE [Suspect]
     Dates: start: 20060519
  3. RITUXAN [Suspect]
     Dates: start: 20060519

REACTIONS (3)
  - BLOOD CREATININE INCREASED [None]
  - FEELING ABNORMAL [None]
  - ORGAN FAILURE [None]
